FAERS Safety Report 20841771 (Version 1)
Quarter: 2022Q2

REPORT INFORMATION
  Report Type: Spontaneous
  Country: ZW (occurrence: ZW)
  Receive Date: 20220518
  Receipt Date: 20220518
  Transmission Date: 20220720
  Serious: No
  Sender: FDA-Public Use
  Company Number: ZW-LUPIN PHARMACEUTICALS INC.-2022-07033

PATIENT
  Age: 32 Year
  Sex: Female

DRUGS (4)
  1. CEFTRIAXONE [Suspect]
     Active Substance: CEFTRIAXONE
     Indication: Malaria
     Dosage: 1 GRAM, QD
     Route: 042
  2. ARTEMETHER\LUMEFANTRINE [Suspect]
     Active Substance: ARTEMETHER\LUMEFANTRINE
     Indication: Malaria
     Dosage: UNK
     Route: 065
  3. ARTESUNATE [Suspect]
     Active Substance: ARTESUNATE
     Indication: Malaria
     Dosage: 2.4 MILLIGRAM/KILOGRAM, QD
     Route: 042
  4. ACETAMINOPHEN [Suspect]
     Active Substance: ACETAMINOPHEN
     Indication: Malaria
     Dosage: 1 GRAM, TID, THREE TIMES A DAY
     Route: 042

REACTIONS (3)
  - Exposure during pregnancy [Unknown]
  - Normal newborn [Unknown]
  - Off label use [Unknown]
